FAERS Safety Report 18455883 (Version 1)
Quarter: 2020Q4

REPORT INFORMATION
  Report Type: Report from Study
  Country: None (occurrence: US)
  Receive Date: 20201102
  Receipt Date: 20201102
  Transmission Date: 20210114
  Serious: Yes (Other)
  Sender: FDA-Public Use
  Company Number: US-ABBVIE-20P-163-3392997-00

PATIENT
  Age: 67 Year
  Sex: Male

DRUGS (4)
  1. IMBRUVICA [Suspect]
     Active Substance: IBRUTINIB
     Indication: CHRONIC LYMPHOCYTIC LEUKAEMIA
     Route: 048
     Dates: start: 20200219
  2. IMBRUVICA [Suspect]
     Active Substance: IBRUTINIB
     Route: 048
  3. IMBRUVICA [Suspect]
     Active Substance: IBRUTINIB
     Indication: CHRONIC LYMPHOCYTIC LEUKAEMIA
     Route: 048
  4. IMBRUVICA [Suspect]
     Active Substance: IBRUTINIB
     Route: 048
     Dates: start: 202002

REACTIONS (13)
  - Chills [Unknown]
  - Pulmonary fibrosis [Unknown]
  - Memory impairment [Unknown]
  - White blood cell count abnormal [Recovering/Resolving]
  - Diarrhoea [Recovered/Resolved]
  - Type 2 diabetes mellitus [Unknown]
  - Sluggishness [Unknown]
  - Hyperhidrosis [Unknown]
  - Constipation [Unknown]
  - Fatigue [Unknown]
  - Product dose omission issue [Unknown]
  - Somnolence [Unknown]
  - Muscle spasms [Recovering/Resolving]

NARRATIVE: CASE EVENT DATE: 2020
